FAERS Safety Report 9254487 (Version 2)
Quarter: 2013Q2

REPORT INFORMATION
  Report Type: Spontaneous
  Country: US (occurrence: US)
  Receive Date: 20130425
  Receipt Date: 20130620
  Transmission Date: 20140414
  Serious: Yes (Hospitalization, Other)
  Sender: FDA-Public Use
  Company Number: US-PFIZER INC-2013127915

PATIENT
  Age: 45 Year
  Sex: Female
  Weight: 105 kg

DRUGS (4)
  1. PRISTIQ [Suspect]
     Indication: DEPRESSION
     Dosage: UNK
     Dates: start: 20130307, end: 2013
  2. PRISTIQ [Suspect]
     Dosage: UNK, ALTERNATE DAY
     Dates: start: 2013, end: 2013
  3. PRISTIQ [Suspect]
     Dosage: UNK, EVERY TWO DAYS
     Dates: start: 2013
  4. XANAX [Suspect]
     Dosage: UNK

REACTIONS (7)
  - Depression [Unknown]
  - Suicidal ideation [Recovered/Resolved]
  - Paraesthesia [Unknown]
  - Tremor [Unknown]
  - Somnolence [Unknown]
  - Sedation [Unknown]
  - Nervousness [Unknown]
